FAERS Safety Report 12865808 (Version 3)
Quarter: 2017Q2

REPORT INFORMATION
  Report Type: Spontaneous
  Country: US (occurrence: US)
  Receive Date: 20161020
  Receipt Date: 20170412
  Transmission Date: 20170830
  Serious: No
  Sender: FDA-Public Use
  Company Number: US-PFIZER INC-2016488390

PATIENT
  Age: 65 Year
  Sex: Male
  Weight: 115.2 kg

DRUGS (2)
  1. BENZATHINE BENZYLPENICILLIN [Suspect]
     Active Substance: PENICILLIN G BENZATHINE
     Indication: PAIN IN EXTREMITY
     Dosage: UNK
     Dates: start: 20160726
  2. BENZATHINE BENZYLPENICILLIN [Suspect]
     Active Substance: PENICILLIN G BENZATHINE
     Indication: DERMATITIS
     Dosage: UNK
     Dates: start: 20160802

REACTIONS (4)
  - Gait disturbance [Unknown]
  - Drug ineffective for unapproved indication [Unknown]
  - Pain in extremity [Recovered/Resolved]
  - Injection site pain [Recovered/Resolved]

NARRATIVE: CASE EVENT DATE: 20160726
